FAERS Safety Report 8974771 (Version 1)
Quarter: 2012Q4

REPORT INFORMATION
  Report Type: Spontaneous
  Country: US (occurrence: None)
  Receive Date: 20121217
  Receipt Date: 20121217
  Transmission Date: 20130627
  Serious: Yes (Other)
  Sender: FDA-Public Use
  Company Number: None

PATIENT
  Age: 65 Year
  Sex: Female
  Weight: 57.43 kg

DRUGS (2)
  1. BUPROPRION XL [Suspect]
     Route: 048
     Dates: start: 20120816, end: 20121025
  2. BUPROPRION XL [Suspect]
     Route: 048
     Dates: start: 20120816, end: 20121025

REACTIONS (7)
  - Gait disturbance [None]
  - Tremor [None]
  - Somnolence [None]
  - Hot flush [None]
  - Dizziness [None]
  - Depression [None]
  - Mood altered [None]
